FAERS Safety Report 12037181 (Version 1)
Quarter: 2016Q1

REPORT INFORMATION
  Report Type: Spontaneous
  Country: US (occurrence: None)
  Receive Date: 20160205
  Receipt Date: 20160205
  Transmission Date: 20160526
  Serious: No
  Sender: FDA-Public Use
  Company Number: None

PATIENT
  Age: 57 Year
  Sex: Male
  Weight: 92.99 kg

DRUGS (5)
  1. VITAMINS WITH CALCIUM [Concomitant]
  2. MAGNESIUM + ZINC [Concomitant]
  3. PRILOSEC [Concomitant]
     Active Substance: OMEPRAZOLE MAGNESIUM
  4. HYDROCODONE [Suspect]
     Active Substance: HYDROCODONE
     Indication: COUGH
     Dosage: 240 1 TEASPOONFUL EVERY 4 HOURS TAKEN BY MOUTH
     Route: 048
     Dates: start: 20160105, end: 20160106
  5. UNISOM SLEEPTABS [Concomitant]
     Active Substance: DOXYLAMINE SUCCINATE

REACTIONS (2)
  - Nausea [None]
  - Vomiting [None]

NARRATIVE: CASE EVENT DATE: 20160106
